FAERS Safety Report 7103342-4 (Version None)
Quarter: 2010Q4

REPORT INFORMATION
  Report Type: 
  Country: None (occurrence: None)
  Receive Date: 20101115
  Receipt Date: 20101103
  Transmission Date: 20110411
  Serious: Yes (Hospitalization, Other)
  Sender: FDA-Public Use
  Company Number: PHHY2010TW24259

PATIENT
  Sex: Male

DRUGS (1)
  1. GLEEVEC [Suspect]
     Indication: CHRONIC MYELOID LEUKAEMIA
     Dosage: 600 MG/800 MG, UNK
     Route: 048
     Dates: start: 20090303

REACTIONS (4)
  - MASS EXCISION [None]
  - RETINAL DETACHMENT [None]
  - SURGERY [None]
  - TUBERCULOSIS [None]
